FAERS Safety Report 8789181 (Version 1)
Quarter: 2012Q4

REPORT INFORMATION
  Report Type: Spontaneous
  Country: US (occurrence: None)
  Receive Date: 20120910
  Receipt Date: 20120910
  Transmission Date: 20130627
  Serious: Yes (Death)
  Sender: FDA-Public Use
  Company Number: None

PATIENT
  Age: 71 Year
  Sex: Male
  Weight: 81 kg

DRUGS (3)
  1. BORTEZOMIB [Suspect]
     Indication: MULTIPLE MYELOMA
     Dosage: 2.5 mg (1.3 mg/m2) D1,5,8,12 Subcutaneously

7/12, 7/16, 7/19, 7/23
8/2
     Route: 058
  2. TRIMETHOPRIM/SULFAMETHOXAZOLE [Concomitant]
  3. ACYCLOVIR [Concomitant]

REACTIONS (6)
  - Hypoxia [None]
  - Dyspnoea exertional [None]
  - Pulmonary haemorrhage [None]
  - Pneumothorax [None]
  - Cardiac arrest [None]
  - Renal failure [None]
